FAERS Safety Report 4364784-3 (Version None)
Quarter: 2004Q2

REPORT INFORMATION
  Report Type: 
  Country: None (occurrence: None)
  Receive Date: 20040521
  Receipt Date: 20040511
  Transmission Date: 20050107
  Serious: Yes (Hospitalization)
  Sender: FDA-Public Use
  Company Number: 2004CG00922

PATIENT
  Age: 75 Year
  Sex: Female
  Weight: 63 kg

DRUGS (6)
  1. TENORMIN [Suspect]
     Indication: HYPERTENSION
     Dates: start: 19980615, end: 20020615
  2. FURADANTIN [Suspect]
     Indication: URINARY TRACT INFECTION
     Dates: start: 20020115, end: 20040315
  3. MOPRAL [Concomitant]
  4. ACTONEL [Concomitant]
  5. FOSAMAX [Concomitant]
  6. CORTANCYL [Concomitant]

REACTIONS (2)
  - INTERSTITIAL LUNG DISEASE [None]
  - LUPUS-LIKE SYNDROME [None]
